FAERS Safety Report 20186944 (Version 1)
Quarter: 2021Q4

REPORT INFORMATION
  Report Type: Spontaneous
  Country: CA (occurrence: CA)
  Receive Date: 20211215
  Receipt Date: 20211215
  Transmission Date: 20220303
  Serious: Yes (Hospitalization)
  Sender: FDA-Public Use
  Company Number: CA-NOVARTISPH-NVSC2021CA286902

PATIENT
  Age: 1 Month
  Sex: Male
  Weight: 3 kg

DRUGS (1)
  1. MAXIDEX [Suspect]
     Active Substance: DEXAMETHASONE
     Indication: Nasal congestion
     Dosage: 8.0 DROPS (2 EVERY 1 DAYS)
     Route: 006

REACTIONS (4)
  - Adrenal insufficiency [Recovered/Resolved with Sequelae]
  - Cortisol abnormal [Recovered/Resolved with Sequelae]
  - Overdose [Recovered/Resolved with Sequelae]
  - Prescribed overdose [Recovered/Resolved with Sequelae]
